FAERS Safety Report 26214698 (Version 1)
Quarter: 2025Q4

REPORT INFORMATION
  Report Type: Spontaneous
  Country: KR (occurrence: KR)
  Receive Date: 20251230
  Receipt Date: 20251230
  Transmission Date: 20260118
  Serious: Yes (Other)
  Sender: ELI LILLY AND COMPANY
  Company Number: KR-ELI_LILLY_AND_COMPANY-KR202512026819

PATIENT
  Sex: Female

DRUGS (1)
  1. TRULICITY [Suspect]
     Active Substance: DULAGLUTIDE
     Indication: Product used for unknown indication
     Dosage: 1.5 MG, UNKNOWN
     Route: 065
     Dates: start: 202509

REACTIONS (13)
  - Gastric ulcer [Unknown]
  - Enteritis [Not Recovered/Not Resolved]
  - Dyspnoea [Unknown]
  - Balance disorder [Not Recovered/Not Resolved]
  - Gastrointestinal injury [Unknown]
  - Cardiac disorder [Unknown]
  - Dizziness [Unknown]
  - Mobility decreased [Unknown]
  - Scab [Unknown]
  - Swelling of nose [Unknown]
  - Chest discomfort [Unknown]
  - Lip swelling [Unknown]
  - Fatigue [Unknown]
